FAERS Safety Report 6854699-0 (Version None)
Quarter: 2010Q3

REPORT INFORMATION
  Report Type: 
  Country: None (occurrence: None)
  Receive Date: 20100717
  Receipt Date: 20080110
  Transmission Date: 20110219
  Serious: No
  Sender: FDA-Public Use
  Company Number: US-PFIZER INC-2008004141

PATIENT
  Sex: Female
  Weight: 49 kg

DRUGS (8)
  1. CHANTIX [Suspect]
     Indication: SMOKING CESSATION THERAPY
     Dates: start: 20080101
  2. CLONIDINE [Concomitant]
     Indication: HYPERTENSION
  3. ENALAPRIL MALEATE [Concomitant]
     Indication: HYPERTENSION
  4. ZETIA [Concomitant]
     Indication: BLOOD CHOLESTEROL INCREASED
  5. SIMVASTATIN [Concomitant]
     Indication: BLOOD CHOLESTEROL INCREASED
  6. EFFEXOR [Concomitant]
     Indication: DEPRESSION
  7. WARFARIN SODIUM [Concomitant]
  8. ACETYLSALICYLIC ACID [Concomitant]

REACTIONS (3)
  - CHEST DISCOMFORT [None]
  - NAUSEA [None]
  - VOMITING [None]
